FAERS Safety Report 8312752-9 (Version None)
Quarter: 2012Q2

REPORT INFORMATION
  Report Type: 
  Country: None (occurrence: None)
  Receive Date: 20120426
  Receipt Date: 20120412
  Transmission Date: 20120825
  Serious: Yes (Other)
  Sender: FDA-Public Use
  Company Number: BR-AMGEN-BRASP2012024350

PATIENT
  Age: 69 Year
  Sex: Female
  Weight: 50 kg

DRUGS (8)
  1. PRELONE [Concomitant]
     Indication: PAIN
     Dosage: UNK
  2. ENBREL [Suspect]
     Indication: PRODUCT USED FOR UNKNOWN INDICATION
     Dosage: 50 MG, ONCE WEEKLY
     Route: 058
     Dates: start: 20120319
  3. RISPERIDONE [Concomitant]
     Indication: GASTRIC DISORDER
     Dosage: UNK
  4. OMEGA 3                            /01334101/ [Concomitant]
     Dosage: UNK
  5. CINNARIZINE [Concomitant]
     Indication: MALAISE
     Dosage: UNK
  6. GARDENAL                           /00023201/ [Concomitant]
     Indication: CENTRAL NERVOUS SYSTEM LESION
     Dosage: UNK
  7. ISONIAZID [Concomitant]
     Indication: PROPHYLAXIS
     Dosage: UNK
     Dates: start: 20111101
  8. CITALOPRAM HYDROBROMIDE [Concomitant]
     Indication: ISCHAEMIA
     Dosage: UNK

REACTIONS (8)
  - DEPRESSED MOOD [None]
  - WEIGHT INCREASED [None]
  - WRONG TECHNIQUE IN DRUG USAGE PROCESS [None]
  - BURNING SENSATION [None]
  - ASTHENIA [None]
  - PARALYSIS [None]
  - NAUSEA [None]
  - PAIN [None]
